FAERS Safety Report 11713893 (Version 7)
Quarter: 2017Q1

REPORT INFORMATION
  Report Type: Spontaneous
  Country: US (occurrence: US)
  Receive Date: 20151109
  Receipt Date: 20170320
  Transmission Date: 20170428
  Serious: Yes (Congenital Anomaly, Other)
  Sender: FDA-Public Use
  Company Number: PHEH2015US022889

PATIENT
  Sex: Male

DRUGS (8)
  1. ONDANSETRON HYDROCHLORIDE. [Suspect]
     Active Substance: ONDANSETRON HYDROCHLORIDE
     Indication: FOETAL EXPOSURE DURING PREGNANCY
     Route: 064
  2. ZOFRAN [Suspect]
     Active Substance: ONDANSETRON HYDROCHLORIDE
     Indication: FOETAL EXPOSURE DURING PREGNANCY
     Dosage: MOTHER^S DOSE: 1 TABLET (DF), Q6H
     Route: 064
  3. ONDANSETRON DR REDDY [Suspect]
     Active Substance: ONDANSETRON
     Indication: FOETAL EXPOSURE DURING PREGNANCY
     Dosage: MOTHER DOSE: 8 MG THRICE DAILY (TID)
     Route: 064
  4. ONDANSETRON HYDROCHLORIDE. [Suspect]
     Active Substance: ONDANSETRON HYDROCHLORIDE
     Indication: FOETAL EXPOSURE DURING PREGNANCY
     Route: 064
  5. ZOFRAN ODT [Suspect]
     Active Substance: ONDANSETRON HYDROCHLORIDE
     Indication: FOETAL EXPOSURE DURING PREGNANCY
     Dosage: MOTHER^S DOSE: 1 DF, Q8H
     Route: 064
  6. ZOFRAN [Suspect]
     Active Substance: ONDANSETRON HYDROCHLORIDE
     Indication: FOETAL EXPOSURE DURING PREGNANCY
     Route: 064
  7. ONDANSETRON AUROBINDO [Suspect]
     Active Substance: ONDANSETRON HYDROCHLORIDE
     Indication: FOETAL EXPOSURE DURING PREGNANCY
     Dosage: MOTHER DOSE: 8 MG, EVERY 4 HOURS (Q4H) AND THRICE DAILY (TID)
     Route: 064
  8. ONDANSETRON TEVA//ONDANSETRON [Suspect]
     Active Substance: ONDANSETRON
     Indication: FOETAL EXPOSURE DURING PREGNANCY
     Dosage: MOTHER DOSE: 8 MG THIRCE DAILY (TID)
     Route: 064

REACTIONS (30)
  - Heart disease congenital [Unknown]
  - Interruption of aortic arch [Unknown]
  - Neonatal tachypnoea [Unknown]
  - Body dysmorphic disorder [Unknown]
  - Multiple congenital abnormalities [Unknown]
  - Neonatal hypotension [Unknown]
  - Renal tubular necrosis [Unknown]
  - Ventricular septal defect [Unknown]
  - Injury [Unknown]
  - Patent ductus arteriosus [Unknown]
  - Neonatal respiratory failure [Unknown]
  - Emotional distress [Unknown]
  - Upper respiratory tract infection [Unknown]
  - Ectropion [Unknown]
  - Anaemia [Unknown]
  - Foetal exposure during pregnancy [Unknown]
  - Decreased appetite [Unknown]
  - Gastrooesophageal reflux disease [Unknown]
  - Strabismus [Unknown]
  - Gastroenteritis viral [Unknown]
  - Bronchitis [Unknown]
  - Neonatal hypoxia [Unknown]
  - Pain [Unknown]
  - Acute sinusitis [Unknown]
  - Pyrexia [Unknown]
  - Atrial septal defect [Unknown]
  - Failure to thrive [Unknown]
  - Anhedonia [Unknown]
  - Dermatitis diaper [Unknown]
  - Anxiety [Unknown]
